FAERS Safety Report 5590362-4 (Version None)
Quarter: 2008Q1

REPORT INFORMATION
  Report Type: 
  Country: None (occurrence: None)
  Receive Date: 20080114
  Receipt Date: 20080108
  Transmission Date: 20080703
  Serious: Yes (Hospitalization)
  Sender: FDA-Public Use
  Company Number: US-ROXANE LABORATORIES, INC-2008-BP-00382RO

PATIENT
  Age: 65 Year
  Sex: Female

DRUGS (4)
  1. CYCLOPHOSPHAMIDE [Suspect]
     Indication: ANTI-NEUTROPHIL CYTOPLASMIC ANTIBODY POSITIVE VASCULITIS
  2. PREDNISONE TAB [Suspect]
     Indication: TEMPORAL ARTERITIS
  3. ALBENDAZOLE [Concomitant]
     Indication: STRONGYLOIDIASIS
  4. BROAD-SPECTRUM ANTIBIOTICS [Concomitant]
     Indication: INFECTION

REACTIONS (5)
  - ACUTE RESPIRATORY FAILURE [None]
  - ANTI-NEUTROPHIL CYTOPLASMIC ANTIBODY POSITIVE VASCULITIS [None]
  - HAEMOPTYSIS [None]
  - MULTI-ORGAN FAILURE [None]
  - STRONGYLOIDIASIS [None]
